FAERS Safety Report 7684426-9 (Version None)
Quarter: 2011Q3

REPORT INFORMATION
  Report Type: 
  Country: None (occurrence: None)
  Receive Date: 20110816
  Receipt Date: 20110729
  Transmission Date: 20111222
  Serious: No
  Sender: FDA-Public Use
  Company Number: US-BIOGENIDEC-2010BI019490

PATIENT
  Sex: Female

DRUGS (3)
  1. TYSABRI [Suspect]
     Indication: MULTIPLE SCLEROSIS
     Route: 042
     Dates: start: 20100527, end: 20101109
  2. COPAXONE [Concomitant]
     Indication: MULTIPLE SCLEROSIS
  3. AVONEX [Concomitant]
     Indication: MULTIPLE SCLEROSIS
     Route: 030

REACTIONS (13)
  - ARTHRITIS [None]
  - OEDEMA PERIPHERAL [None]
  - QUALITY OF LIFE DECREASED [None]
  - PAIN [None]
  - EYE PAIN [None]
  - HEADACHE [None]
  - VEIN DISORDER [None]
  - URINARY TRACT INFECTION [None]
  - INFUSION SITE PAIN [None]
  - OSTEOPENIA [None]
  - CENTRAL NERVOUS SYSTEM LESION [None]
  - ENDOMETRIOSIS [None]
  - ARTHRALGIA [None]
